FAERS Safety Report 24000764 (Version 2)
Quarter: 2024Q4

REPORT INFORMATION
  Report Type: Spontaneous
  Country: US (occurrence: US)
  Receive Date: 20240621
  Receipt Date: 20241205
  Transmission Date: 20250114
  Serious: No
  Sender: ARGENX BVBA
  Company Number: US-ARGENX-2024-ARGX-US004462

PATIENT

DRUGS (1)
  1. EFGARTIGIMOD ALFA-FCAB [Suspect]
     Active Substance: EFGARTIGIMOD ALFA-FCAB
     Indication: Myasthenia gravis
     Route: 042

REACTIONS (2)
  - Activities of daily living assessment [Unknown]
  - Therapeutic response shortened [Unknown]
